FAERS Safety Report 4496409-0 (Version None)
Quarter: 2004Q4

REPORT INFORMATION
  Report Type: 
  Country: None (occurrence: None)
  Receive Date: 20041108
  Receipt Date: 20041108
  Transmission Date: 20050328
  Serious: No
  Sender: FDA-Public Use
  Company Number: None

PATIENT
  Age: 53 Year
  Sex: Male
  Weight: 92.2 kg

DRUGS (4)
  1. DOCETAXEL [Suspect]
     Indication: PROSTATE CANCER
     Dosage: 80 MG, D1,8,15, IV
     Route: 042
     Dates: start: 20040929
  2. CAPECITABINE [Suspect]
     Indication: PROSTATE CANCER
     Dosage: 1250 MG/M2, D5-18, PO
     Route: 048
     Dates: start: 20041003
  3. COMPAZINE [Concomitant]
  4. DECADRON [Concomitant]

REACTIONS (3)
  - BURNING SENSATION [None]
  - ERYTHEMA [None]
  - PALMAR-PLANTAR ERYTHRODYSAESTHESIA SYNDROME [None]
